FAERS Safety Report 7629616-6 (Version None)
Quarter: 2011Q3

REPORT INFORMATION
  Report Type: 
  Country: None (occurrence: None)
  Receive Date: 20110722
  Receipt Date: 20110720
  Transmission Date: 20111222
  Serious: Yes (Hospitalization)
  Sender: FDA-Public Use
  Company Number: US-PURDUE-USA-2011-0072274

PATIENT
  Age: 55 Year
  Sex: Male

DRUGS (2)
  1. ZOLOFT [Suspect]
     Indication: PRODUCT USED FOR UNKNOWN INDICATION
  2. TRAMADOL HCL [Suspect]
     Indication: PRODUCT USED FOR UNKNOWN INDICATION

REACTIONS (2)
  - STEVENS-JOHNSON SYNDROME [None]
  - BURNS THIRD DEGREE [None]
